FAERS Safety Report 16222532 (Version 1)
Quarter: 2019Q2

REPORT INFORMATION
  Report Type: Spontaneous
  Country: US (occurrence: US)
  Receive Date: 20190419
  Receipt Date: 20190419
  Transmission Date: 20190711
  Serious: Yes (Hospitalization)
  Sender: FDA-Public Use
  Company Number: None

PATIENT
  Age: 58 Year
  Sex: Female

DRUGS (8)
  1. HYDROXYCHLOR [Concomitant]
     Active Substance: HYDROXYCHLOROQUINE
  2. MEKINIST [Suspect]
     Active Substance: TRAMETINIB DIMETHYL SULFOXIDE
     Route: 048
     Dates: start: 20190227
  3. TAFINLAR [Concomitant]
     Active Substance: DABRAFENIB MESYLATE
  4. LEVOTHYROXIN [Concomitant]
     Active Substance: LEVOTHYROXINE
  5. TEMAZEPAM. [Concomitant]
     Active Substance: TEMAZEPAM
  6. VENLAFAXINE [Concomitant]
     Active Substance: VENLAFAXINE HYDROCHLORIDE
  7. ELIQUIS [Concomitant]
     Active Substance: APIXABAN
  8. ESOMEPRA [Concomitant]
     Active Substance: ESOMEPRAZOLE

REACTIONS (2)
  - Spleen disorder [None]
  - Therapy cessation [None]

NARRATIVE: CASE EVENT DATE: 20190325
